FAERS Safety Report 5008122-1 (Version None)
Quarter: 2006Q2

REPORT INFORMATION
  Report Type: 
  Country: None (occurrence: None)
  Receive Date: 20060522
  Receipt Date: 20060518
  Transmission Date: 20061013
  Serious: Yes (Hospitalization)
  Sender: FDA-Public Use
  Company Number: AU-BOEHRINGER INGELHEIM PHARMACEUTICALS, INC.-2006-BP-05560AU

PATIENT
  Sex: Female

DRUGS (8)
  1. MOBIC [Suspect]
     Dates: start: 20051017
  2. ASPIRIN [Concomitant]
  3. PARACETAMOL [Concomitant]
  4. GLUCOSAMINE [Concomitant]
  5. IMDUR [Concomitant]
  6. SIMVASTATIN [Concomitant]
  7. ADEFIN (NIFEDIPINE) [Concomitant]
  8. EYE DROPS [Concomitant]

REACTIONS (2)
  - ACUTE PULMONARY OEDEMA [None]
  - CARDIAC FAILURE [None]
